FAERS Safety Report 17978663 (Version 2)
Quarter: 2020Q3

REPORT INFORMATION
  Report Type: Spontaneous
  Country: JP (occurrence: JP)
  Receive Date: 20200703
  Receipt Date: 20200710
  Transmission Date: 20201103
  Serious: Yes (Other)
  Sender: FDA-Public Use
  Company Number: JP-ROCHE-2635730

PATIENT
  Age: 7 Decade
  Sex: Female

DRUGS (10)
  1. RAMUCIRUMAB [Concomitant]
     Active Substance: RAMUCIRUMAB
     Indication: SMALL INTESTINE ADENOCARCINOMA
     Dosage: DOSAGE IS UNCERTAIN.
     Route: 041
  2. IRINOTECAN HYDROCHLORIDE. [Concomitant]
     Active Substance: IRINOTECAN HYDROCHLORIDE
     Indication: SMALL INTESTINE ADENOCARCINOMA
     Dosage: DOSAGE IS UNCERTAIN.
     Route: 041
  3. FLUOROURACIL. [Concomitant]
     Active Substance: FLUOROURACIL
     Dosage: DOSAGE IS UNCERTAIN.
     Route: 041
  4. AVASTIN [Suspect]
     Active Substance: BEVACIZUMAB
     Indication: SMALL INTESTINE ADENOCARCINOMA
     Dosage: DOSAGE IS UNCERTAIN.
     Route: 041
  5. FLUOROURACIL. [Concomitant]
     Active Substance: FLUOROURACIL
     Indication: SMALL INTESTINE ADENOCARCINOMA
     Dosage: DOSAGE IS UNCERTAIN.
     Route: 040
  6. LEVOFOLINATE CALCIUM [Concomitant]
     Active Substance: LEVOLEUCOVORIN CALCIUM
     Indication: SMALL INTESTINE ADENOCARCINOMA
     Dosage: DOSAGE IS UNCERTAIN.
     Route: 041
  7. TIPIRACIL HYDROCHLORIDE;TRIFLURIDINE [Concomitant]
     Active Substance: TIPIRACIL HYDROCHLORIDE\TRIFLURIDINE
     Indication: SMALL INTESTINE ADENOCARCINOMA
     Dosage: DOSAGE IS UNCERTAIN.
     Route: 048
  8. AVASTIN [Suspect]
     Active Substance: BEVACIZUMAB
     Dosage: DOSAGE IS UNCERTAIN.
     Route: 041
  9. XELODA [Suspect]
     Active Substance: CAPECITABINE
     Indication: SMALL INTESTINE ADENOCARCINOMA
     Dosage: DOSAGE IS UNCERTAIN.
     Route: 048
  10. OXALIPLATIN. [Concomitant]
     Active Substance: OXALIPLATIN
     Indication: SMALL INTESTINE ADENOCARCINOMA
     Dosage: DOSAGE IS UNCERTAIN.
     Route: 041

REACTIONS (4)
  - Off label use [Unknown]
  - Intentional product use issue [Unknown]
  - Metastases to ovary [Unknown]
  - Metastases to liver [Unknown]
